FAERS Safety Report 8111344-4 (Version None)
Quarter: 2012Q1

REPORT INFORMATION
  Report Type: 
  Country: None (occurrence: None)
  Receive Date: 20120203
  Receipt Date: 20110916
  Transmission Date: 20120608
  Serious: No
  Sender: FDA-Public Use
  Company Number: US-GLAXOSMITHKLINE-A0944966A

PATIENT
  Age: 44 Year
  Sex: Female

DRUGS (3)
  1. FLEXERIL [Concomitant]
  2. LAMICTAL [Suspect]
     Indication: DEPRESSION
     Dosage: 100MG PER DAY
     Route: 048
     Dates: start: 20110602
  3. SEROQUEL [Concomitant]

REACTIONS (2)
  - WEIGHT INCREASED [None]
  - INCREASED APPETITE [None]
